FAERS Safety Report 8758203 (Version 2)
Quarter: 2012Q4

REPORT INFORMATION
  Report Type: Spontaneous
  Country: US (occurrence: None)
  Receive Date: 20120814
  Receipt Date: 20121012
  Transmission Date: 20130627
  Serious: Yes (Death, Hospitalization)
  Sender: FDA-Public Use
  Company Number: QSC-2012-0164

PATIENT
  Age: 8 Year
  Sex: Female

DRUGS (7)
  1. ADRENOCORTICOTROPIC HORMONE [Suspect]
     Indication: OPSOCLONUS MYOCLONUS
     Route: 030
  2. ADRENOCORTICOTROPIC HORMONE [Suspect]
     Indication: OPSOCLONUS MYOCLONUS
     Route: 030
  3. ADRENOCORTICOTROPIC HORMONE [Suspect]
     Indication: OPSOCLONUS MYOCLONUS
     Dosage: TAPER
     Route: 030
  4. ADRENOCORTICOTROPIC HORMONE [Suspect]
     Indication: OPSOCLONUS MYOCLONUS
     Route: 030
  5. KLONOPIN (CLONAZEPAM) (TABLETS) [Suspect]
  6. TOPAMAX (TOPIRAMATE) [Suspect]
  7. GEODON [Suspect]

REACTIONS (3)
  - Syncope [None]
  - Sudden death [None]
  - Anger [None]
